FAERS Safety Report 7437220-8 (Version None)
Quarter: 2011Q2

REPORT INFORMATION
  Report Type: 
  Country: None (occurrence: None)
  Receive Date: 20110426
  Receipt Date: 20110420
  Transmission Date: 20111010
  Serious: Yes (Other)
  Sender: FDA-Public Use
  Company Number: JP-BRISTOL-MYERS SQUIBB COMPANY-15685316

PATIENT
  Age: 65 Year

DRUGS (2)
  1. ADRIACIN [Suspect]
     Indication: UTERINE CANCER
     Route: 041
     Dates: start: 20110407, end: 20110407
  2. CISPLATIN [Suspect]
     Indication: UTERINE CANCER
     Route: 041
     Dates: start: 20110407, end: 20110407

REACTIONS (5)
  - BLINDNESS [None]
  - WEIGHT ABNORMAL [None]
  - RENAL TUBULAR DISORDER [None]
  - ELECTROLYTE IMBALANCE [None]
  - CONVULSION [None]
